FAERS Safety Report 24145836 (Version 5)
Quarter: 2025Q3

REPORT INFORMATION
  Report Type: Spontaneous
  Country: US (occurrence: US)
  Receive Date: 20240729
  Receipt Date: 20250821
  Transmission Date: 20251021
  Serious: Yes (Other)
  Sender: CATALYST PHARMA
  Company Number: US-CATALYST PHARMACEUTICALS, INC-US-CATA-24-00732

PATIENT
  Age: 27 Year
  Sex: Male

DRUGS (1)
  1. FYCOMPA [Suspect]
     Active Substance: PERAMPANEL
     Indication: Product used for unknown indication
     Dosage: TAKE 1 TABLET (6 MG) EVERY NIGHT AT BEDTIME
     Route: 048

REACTIONS (8)
  - Seizure [Unknown]
  - Seizure [Unknown]
  - Seizure [Not Recovered/Not Resolved]
  - Seizure [Unknown]
  - Seizure [Unknown]
  - Impaired work ability [Unknown]
  - Memory impairment [Unknown]
  - Product use issue [Unknown]

NARRATIVE: CASE EVENT DATE: 20240701
